FAERS Safety Report 9295971 (Version 2)
Quarter: 2013Q2

REPORT INFORMATION
  Report Type: Report from Study
  Country: GB (occurrence: GB)
  Receive Date: 20130517
  Receipt Date: 20130529
  Transmission Date: 20140414
  Serious: Yes (Hospitalization)
  Sender: FDA-Public Use
  Company Number: GB-CELGENEUS-167-21880-13050988

PATIENT
  Age: 71 Year
  Sex: Male

DRUGS (5)
  1. REVLIMID [Suspect]
     Indication: PLASMA CELL MYELOMA
     Dosage: 25 MILLIGRAM
     Route: 048
     Dates: start: 20121126
  2. CYCLOPHOSPHAMIDE [Suspect]
     Indication: PLASMA CELL MYELOMA
     Route: 048
     Dates: start: 20121126
  3. DEXAMETHASONE [Suspect]
     Indication: PLASMA CELL MYELOMA
     Route: 048
     Dates: start: 20121126
  4. ANTIBIOTICS [Concomitant]
     Indication: PRODUCT USED FOR UNKNOWN INDICATION
     Route: 041
  5. FLUIDS [Concomitant]
     Indication: PRODUCT USED FOR UNKNOWN INDICATION
     Route: 041

REACTIONS (1)
  - Urinary tract infection [Recovered/Resolved with Sequelae]
